FAERS Safety Report 5017816-3 (Version None)
Quarter: 2006Q2

REPORT INFORMATION
  Report Type: 
  Country: None (occurrence: None)
  Receive Date: 20060530
  Receipt Date: 20060516
  Transmission Date: 20061013
  Serious: Yes (Hospitalization, Other)
  Sender: FDA-Public Use
  Company Number: 2005142180

PATIENT
  Age: 77 Year
  Sex: Female

DRUGS (1)
  1. BEXTRA [Suspect]
     Indication: INFLAMMATION
     Dosage: 20 MG 20 MG, 1 IN 1 D
     Dates: start: 20021127

REACTIONS (2)
  - CEREBROVASCULAR ACCIDENT [None]
  - FACIAL PALSY [None]
